FAERS Safety Report 13896126 (Version 1)
Quarter: 2017Q3

REPORT INFORMATION
  Report Type: Spontaneous
  Country: US (occurrence: None)
  Receive Date: 20170816
  Receipt Date: 20170816
  Transmission Date: 20171127
  Serious: No
  Sender: FDA-Public Use
  Company Number: None

PATIENT
  Age: 78 Year
  Sex: Female
  Weight: 63.5 kg

DRUGS (10)
  1. ALENDRONATE [Concomitant]
     Active Substance: ALENDRONATE SODIUM
  2. RESERVATOL [Concomitant]
  3. VITAMIN D3 [Concomitant]
     Active Substance: CHOLECALCIFEROL
  4. ASPIRIN. [Concomitant]
     Active Substance: ASPIRIN
  5. BACLOFEN. [Suspect]
     Active Substance: BACLOFEN
     Indication: MUSCLE RELAXANT THERAPY
     Route: 048
     Dates: start: 20170706, end: 20170706
  6. FISH OIL (OMEGA 3) [Concomitant]
  7. LIOTHYRONINE [Concomitant]
     Active Substance: LIOTHYRONINE
  8. LOSARTAN. [Concomitant]
     Active Substance: LOSARTAN
  9. BACLOFEN. [Suspect]
     Active Substance: BACLOFEN
     Indication: SCIATICA
     Route: 048
     Dates: start: 20170706, end: 20170706
  10. LEEVOTHYROXINE [Concomitant]

REACTIONS (5)
  - Vertigo [None]
  - Dizziness [None]
  - Retching [None]
  - Feeding disorder [None]
  - Nausea [None]

NARRATIVE: CASE EVENT DATE: 20170706
